FAERS Safety Report 16570827 (Version 4)
Quarter: 2019Q3

REPORT INFORMATION
  Report Type: Spontaneous
  Country: US (occurrence: US)
  Receive Date: 20190715
  Receipt Date: 20190916
  Transmission Date: 20191004
  Serious: Yes (Hospitalization, Other)
  Sender: FDA-Public Use
  Company Number: US-PFIZER INC-2019295784

PATIENT
  Age: 82 Year
  Sex: Male
  Weight: 90.7 kg

DRUGS (7)
  1. ASA [Concomitant]
     Active Substance: ASPIRIN
     Dosage: 81 MG, UNK
  2. ADVIL [Suspect]
     Active Substance: IBUPROFEN
     Indication: POST PROCEDURAL INFLAMMATION
     Dosage: 600 MG, 4X/DAY(600MG Q6H)
     Route: 048
     Dates: start: 20190606, end: 20190608
  3. ALLOPURINOL. [Concomitant]
     Active Substance: ALLOPURINOL
     Dosage: 300 MG, UNK
  4. COREG [Concomitant]
     Active Substance: CARVEDILOL
     Dosage: 12.5 MG, 2X/DAY
  5. LISINOPRIL. [Concomitant]
     Active Substance: LISINOPRIL
     Dosage: 40 MG, UNK
  6. ATORVASTATIN [Concomitant]
     Active Substance: ATORVASTATIN
     Dosage: 40 MG, UNK
  7. COREG [Concomitant]
     Active Substance: CARVEDILOL
     Dosage: 125 MG, UNK

REACTIONS (5)
  - Overdose [Unknown]
  - Ulcer haemorrhage [Recovered/Resolved]
  - Abdominal pain [Recovered/Resolved]
  - Intentional product use issue [Unknown]
  - Duodenal ulcer [Unknown]

NARRATIVE: CASE EVENT DATE: 201906
